FAERS Safety Report 6698465-8 (Version None)
Quarter: 2010Q2

REPORT INFORMATION
  Report Type: 
  Country: None (occurrence: None)
  Receive Date: 20100427
  Receipt Date: 20100419
  Transmission Date: 20101027
  Serious: Yes (Hospitalization, Other)
  Sender: FDA-Public Use
  Company Number: US-ROCHE-698991

PATIENT

DRUGS (1)
  1. OSELTAMIVIR PHOSPHATE [Suspect]
     Route: 064

REACTIONS (3)
  - NECROTISING COLITIS [None]
  - PREMATURE BABY [None]
  - SMALL FOR DATES BABY [None]
